FAERS Safety Report 8806164 (Version 1)
Quarter: 2012Q4

REPORT INFORMATION
  Report Type: Spontaneous
  Country: None (occurrence: None)
  Receive Date: 20120918
  Receipt Date: 20120918
  Transmission Date: 20130627
  Serious: Yes (Other)
  Sender: FDA-Public Use
  Company Number: AUR-APL-2012-04037

PATIENT
  Age: 71 Year
  Sex: Male
  Weight: 83 kg

DRUGS (4)
  1. METFORMIN (METFORMIN) [Suspect]
     Indication: DIABETES MELLITUS
     Dosage: (500 mg, 2 in 1 d)
     Route: 048
     Dates: start: 20120801, end: 20120803
  2. SIMVASTATIN (SIMVASTATIN) [Concomitant]
  3. METOPROLOL [Concomitant]
  4. MAGNESIUM OXIDE [Concomitant]

REACTIONS (1)
  - Amnesia [None]
